FAERS Safety Report 5560299-5 (Version None)
Quarter: 2007Q4

REPORT INFORMATION
  Report Type: 
  Country: None (occurrence: None)
  Receive Date: 20071214
  Receipt Date: 20071029
  Transmission Date: 20080405
  Serious: No
  Sender: FDA-Public Use
  Company Number: US-ABBOTT-07P-163-0423160-00

PATIENT
  Sex: Male
  Weight: 82.628 kg

DRUGS (6)
  1. HUMIRA [Suspect]
     Indication: RHEUMATOID ARTHRITIS
     Route: 058
     Dates: start: 20070601, end: 20071024
  2. HUMIRA [Suspect]
     Route: 058
     Dates: start: 20071024
  3. OXYCODONE HYDROCHLORIDE [Concomitant]
     Indication: PAIN
  4. VICODIN [Concomitant]
     Indication: PAIN
  5. PREDNISONE [Concomitant]
     Indication: RHEUMATOID ARTHRITIS
  6. UNKNOWN BLOOD PRESSURE MEDICATION [Concomitant]
     Indication: HYPERTENSION

REACTIONS (4)
  - ARTHRALGIA [None]
  - DRUG INEFFECTIVE [None]
  - EPISTAXIS [None]
  - INFLUENZA [None]
